FAERS Safety Report 21493416 (Version 1)
Quarter: 2022Q4

REPORT INFORMATION
  Report Type: Spontaneous
  Country: DE (occurrence: DE)
  Receive Date: 20221021
  Receipt Date: 20221021
  Transmission Date: 20230112
  Serious: Yes (Death, Life-Threatening, Hospitalization, Other)
  Sender: FDA-Public Use
  Company Number: DE-NOVARTISPH-NVSC2020DE359512

PATIENT
  Age: 55 Year

DRUGS (11)
  1. AZATHIOPRINE [Interacting]
     Active Substance: AZATHIOPRINE
     Indication: Vasculitis
     Dosage: 100 MG, QD
     Route: 048
  2. ALLOPURINOL [Interacting]
     Active Substance: ALLOPURINOL
     Indication: Gout
     Dosage: UNK
     Route: 065
  3. FALITHROM [Concomitant]
     Active Substance: PHENPROCOUMON
     Indication: Anticoagulant therapy
     Dosage: UNK
     Route: 065
  4. RAMIPRIL [Concomitant]
     Active Substance: RAMIPRIL
     Indication: Product used for unknown indication
     Dosage: UNK
     Route: 065
  5. CHOLECALCIFEROL [Concomitant]
     Active Substance: CHOLECALCIFEROL
     Indication: Product used for unknown indication
     Dosage: UNK
     Route: 065
  6. METOPROLOL [Concomitant]
     Active Substance: METOPROLOL
     Indication: Product used for unknown indication
     Dosage: UNK
     Route: 065
  7. AGGRENOX [Concomitant]
     Active Substance: ASPIRIN\DIPYRIDAMOLE
     Indication: Product used for unknown indication
     Dosage: UNK
     Route: 065
  8. PREDNISONE [Concomitant]
     Active Substance: PREDNISONE
     Indication: Product used for unknown indication
     Dosage: UNK
     Route: 065
  9. HYDROXYCHLOROQUINE [Concomitant]
     Active Substance: HYDROXYCHLOROQUINE
     Indication: Product used for unknown indication
     Dosage: UNK
     Route: 065
  10. HYDROCHLOROTHIAZIDE [Concomitant]
     Active Substance: HYDROCHLOROTHIAZIDE
     Indication: Product used for unknown indication
     Dosage: UNK
     Route: 065
  11. COLCHICUM AUTUMNALE FLOWER\HERBALS [Concomitant]
     Active Substance: COLCHICUM AUTUMNALE FLOWER\HERBALS
     Indication: Product used for unknown indication
     Dosage: UNK
     Route: 065

REACTIONS (33)
  - Product use in unapproved indication [Fatal]
  - Product prescribing error [Fatal]
  - Drug interaction [Fatal]
  - Labelled drug-drug interaction medication error [Fatal]
  - Condition aggravated [Fatal]
  - Antiphospholipid syndrome [Fatal]
  - Hypertensive crisis [Recovering/Resolving]
  - Muscle haemorrhage [Not Recovered/Not Resolved]
  - Impaired healing [Not Recovered/Not Resolved]
  - Seizure [Not Recovered/Not Resolved]
  - Isosporiasis [Not Recovered/Not Resolved]
  - Sepsis [Not Recovered/Not Resolved]
  - Coagulopathy [Not Recovered/Not Resolved]
  - Acute kidney injury [Recovering/Resolving]
  - Cerebral infarction [Not Recovered/Not Resolved]
  - Pancytopenia [Recovering/Resolving]
  - Cardiac failure [Recovering/Resolving]
  - Ischaemia [Not Recovered/Not Resolved]
  - Pneumonia [Not Recovered/Not Resolved]
  - Bone marrow failure [Recovering/Resolving]
  - Arrhythmia [Recovering/Resolving]
  - Cholecystitis acute [Not Recovered/Not Resolved]
  - Acute respiratory failure [Recovering/Resolving]
  - Myelosuppression [Recovering/Resolving]
  - Organic brain syndrome [Not Recovered/Not Resolved]
  - Hypercoagulation [Not Recovered/Not Resolved]
  - Renal failure [Recovering/Resolving]
  - General physical health deterioration [Unknown]
  - Abscess limb [Not Recovered/Not Resolved]
  - Motor dysfunction [Not Recovered/Not Resolved]
  - Speech disorder [Not Recovered/Not Resolved]
  - Blindness cortical [Not Recovered/Not Resolved]
  - Cholelithiasis [Not Recovered/Not Resolved]
